FAERS Safety Report 4848221-8 (Version None)
Quarter: 2005Q4

REPORT INFORMATION
  Report Type: 
  Country: None (occurrence: None)
  Receive Date: 20051206
  Receipt Date: 20051121
  Transmission Date: 20060501
  Serious: Yes (Congenital Anomaly)
  Sender: FDA-Public Use
  Company Number: 12982

PATIENT
  Sex: 0

DRUGS (2)
  1. CYTARABINE [Suspect]
     Indication: ACUTE MYELOID LEUKAEMIA
  2. DAUNORUBICIN [Suspect]
     Indication: ACUTE MYELOID LEUKAEMIA

REACTIONS (10)
  - BONE MARROW FAILURE [None]
  - CAESAREAN SECTION [None]
  - CONGENITAL HYDRONEPHROSIS [None]
  - CONVULSION NEONATAL [None]
  - DRUG EXPOSURE DURING PREGNANCY [None]
  - FOETAL DISTRESS SYNDROME [None]
  - HYPOGLYCAEMIA NEONATAL [None]
  - NEONATAL HYPONATRAEMIA [None]
  - PREMATURE BABY [None]
  - WEIGHT DECREASE NEONATAL [None]
